FAERS Safety Report 5744458-4 (Version None)
Quarter: 2008Q2

REPORT INFORMATION
  Report Type: 
  Country: None (occurrence: None)
  Receive Date: 20080520
  Receipt Date: 20080514
  Transmission Date: 20081010
  Serious: Yes (Hospitalization)
  Sender: FDA-Public Use
  Company Number: JP-WYE-H04149808

PATIENT
  Sex: Male

DRUGS (2)
  1. TAZOCIN [Suspect]
     Route: 042
  2. HABEKACIN [Suspect]

REACTIONS (1)
  - RENAL DISORDER [None]
